FAERS Safety Report 8275460-9 (Version None)
Quarter: 2012Q2

REPORT INFORMATION
  Report Type: 
  Country: None (occurrence: None)
  Receive Date: 20120411
  Receipt Date: 20120330
  Transmission Date: 20120825
  Serious: Yes (Death, Other)
  Sender: FDA-Public Use
  Company Number: US-BAXTER-2010BH007845

PATIENT
  Sex: Male
  Weight: 116.9 kg

DRUGS (2)
  1. HEPARIN SODIUM 1,000 UNITS IN DEXTROSE 5% [Suspect]
     Route: 042
     Dates: start: 20080313
  2. HEPARIN SODIUM 1,000 UNITS IN DEXTROSE 5% [Suspect]
     Route: 042
     Dates: start: 20080311, end: 20080311

REACTIONS (9)
  - WEIGHT INCREASED [None]
  - CARDIAC FAILURE [None]
  - RENAL FAILURE [None]
  - BLOOD PRESSURE DECREASED [None]
  - PAIN [None]
  - CALCULUS BLADDER [None]
  - LETHARGY [None]
  - RASH PRURITIC [None]
  - BLADDER SPASM [None]
